FAERS Safety Report 6120830-8 (Version None)
Quarter: 2009Q1

REPORT INFORMATION
  Report Type: 
  Country: None (occurrence: None)
  Receive Date: 20090317
  Receipt Date: 20090303
  Transmission Date: 20090719
  Serious: Yes (Death)
  Sender: FDA-Public Use
  Company Number: JP-ROCHE-614938

PATIENT
  Sex: Male

DRUGS (9)
  1. TAMIFLU [Suspect]
     Indication: INFLUENZA IMMUNISATION
     Dosage: DRUG: TAMIFLU CAPSULE
     Route: 048
     Dates: start: 20090202, end: 20090202
  2. TAMIFLU [Suspect]
     Dosage: DOSE INCREASED.
     Route: 048
     Dates: start: 20090203, end: 20090204
  3. TAMIFLU [Suspect]
     Dosage: DOSE DECREASED.
     Route: 048
     Dates: start: 20090205, end: 20090205
  4. DIOVAN [Concomitant]
     Route: 048
  5. ARTIST [Concomitant]
     Route: 048
  6. ALOSITOL [Concomitant]
     Route: 048
  7. ASPIRIN [Concomitant]
     Dosage: FORM: ENTERIC
     Route: 048
  8. TAKEPRON [Concomitant]
     Route: 048
  9. DIGOXIN [Concomitant]
     Dosage: DRUG REPORTED AS: HALFDIGOXIN
     Route: 048

REACTIONS (4)
  - ABNORMAL BEHAVIOUR [None]
  - HALLUCINATION [None]
  - HEPATIC FUNCTION ABNORMAL [None]
  - MULTI-ORGAN FAILURE [None]
